FAERS Safety Report 8018278-4 (Version None)
Quarter: 2011Q4

REPORT INFORMATION
  Report Type: 
  Country: None (occurrence: None)
  Receive Date: 20111228
  Receipt Date: 20111213
  Transmission Date: 20120403
  Serious: Yes (Hospitalization)
  Sender: FDA-Public Use
  Company Number: 1000024108

PATIENT
  Age: 83 Year
  Sex: Female

DRUGS (11)
  1. MEMANTINE HYDROCHLORIDE [Suspect]
     Indication: DEMENTIA ALZHEIMER'S TYPE
     Dosage: 20 MG (20 MG, 1 IN 1 D), ORAL
     Route: 048
     Dates: start: 20110723
  2. DIOVAN [Concomitant]
  3. LASIX [Concomitant]
  4. MAGMITT (MAGNESIUM OXIDE) (MAGNESIUM OXIDE) [Concomitant]
  5. PLAVIX (CLOPIDOGREL BISULFATE) (CLOPIDOGREL BISULFATE) [Concomitant]
  6. ALDACTONE A (SPIRONOLACTONE) (SPIRONOLACTONE) [Concomitant]
  7. MEMANTINE HYDROCHLORIDE [Suspect]
     Indication: DEMENTIA ALZHEIMER'S TYPE
     Dosage: 5 MG (5 MG, 1 IN 1 D), ORAL, 10 MG (10 MG, 1 IN 1 D), ORAL, 15 MG (15 MG, 1 IN 1 D), ORAL
     Route: 048
     Dates: start: 20110709, end: 20110715
  8. MEMANTINE HYDROCHLORIDE [Suspect]
     Indication: DEMENTIA ALZHEIMER'S TYPE
     Dosage: 5 MG (5 MG, 1 IN 1 D), ORAL, 10 MG (10 MG, 1 IN 1 D), ORAL, 15 MG (15 MG, 1 IN 1 D), ORAL
     Route: 048
     Dates: start: 20110702, end: 20110708
  9. MEMANTINE HYDROCHLORIDE [Suspect]
     Indication: DEMENTIA ALZHEIMER'S TYPE
     Dosage: 5 MG (5 MG, 1 IN 1 D), ORAL, 10 MG (10 MG, 1 IN 1 D), ORAL, 15 MG (15 MG, 1 IN 1 D), ORAL
     Route: 048
     Dates: start: 20110716, end: 20110722
  10. ATELEC (CILNIDIPINE) (CLINIDIPINE) [Concomitant]
  11. GASTER D (FAMOTIDINE) (FAMOTIDINE) [Concomitant]

REACTIONS (9)
  - CARDIAC FAILURE CONGESTIVE [None]
  - OEDEMA PERIPHERAL [None]
  - DECREASED APPETITE [None]
  - WEIGHT INCREASED [None]
  - MALAISE [None]
  - APHAGIA [None]
  - RENAL FAILURE [None]
  - CARDIAC ARREST [None]
  - PULMONARY CONGESTION [None]
